FAERS Safety Report 9180537 (Version 3)
Quarter: 2013Q2

REPORT INFORMATION
  Report Type: Spontaneous
  Country: JP (occurrence: None)
  Receive Date: 20130320
  Receipt Date: 20130502
  Transmission Date: 20140414
  Serious: Yes (Hospitalization)
  Sender: FDA-Public Use
  Company Number: AXC-2013-000106

PATIENT
  Age: 70 Year
  Sex: Male

DRUGS (8)
  1. URSODEOXYCHOLIC ACID [Suspect]
     Indication: LIVER TRANSPLANT
     Route: 048
     Dates: start: 2005
  2. URSODEOXYCHOLIC ACID [Suspect]
     Indication: POSTOPERATIVE CARE
     Route: 048
     Dates: start: 2005
  3. PROGRAF (TACROLIMUS) [Concomitant]
  4. PARIET (RABEPRAZOLE SODIUM) [Concomitant]
  5. MICARDIS (TELMISARTAN) [Concomitant]
  6. LASIX /00032601/ (FUROSEMIDE) [Concomitant]
  7. CELLCEPT /01275102/ (MYCOPHENOLATE MOFETIL) [Concomitant]
  8. BISOLVON (BROMHEXINE HYDROCHLORIDE) [Concomitant]

REACTIONS (5)
  - Intestinal obstruction [None]
  - Faecalith [None]
  - Pneumonia [None]
  - Ileus [None]
  - No therapeutic response [None]
